FAERS Safety Report 9169849 (Version 3)
Quarter: 2013Q3

REPORT INFORMATION
  Report Type: Spontaneous
  Country: US (occurrence: US)
  Receive Date: 20130319
  Receipt Date: 20130924
  Transmission Date: 20140515
  Serious: Yes (Other)
  Sender: FDA-Public Use
  Company Number: US-AMGEN-USASP2013018168

PATIENT
  Age: 62 Year
  Sex: Male
  Weight: 133 kg

DRUGS (12)
  1. EPOGEN [Suspect]
     Indication: NEPHROGENIC ANAEMIA
     Dosage: 25000 UNIT, 2 TIMES/WK
     Route: 065
     Dates: start: 20110110
  2. EPOGEN [Suspect]
     Indication: RENAL FAILURE CHRONIC
  3. PHOSLO [Concomitant]
     Dosage: UNK
  4. NEPHROCAPS                         /01801401/ [Concomitant]
     Dosage: UNK
  5. NIFEDIPINE [Concomitant]
     Dosage: UNK
  6. GLIMEPIRIDE [Concomitant]
     Dosage: UNK
  7. ASPIRIN [Concomitant]
     Dosage: UNK
  8. TRAMADOL [Concomitant]
     Dosage: UNK
  9. VENOFER [Concomitant]
     Dosage: 25 MG, UNK
     Route: 042
     Dates: start: 20121123
  10. CEFAZOLIN [Concomitant]
     Dosage: 3 G, UNK
     Route: 042
     Dates: start: 20120113
  11. FLULAVAL [Concomitant]
     Dosage: UNK
     Route: 030
     Dates: start: 20120926
  12. HEPATITIS B SURFACE ANTIGEN [Concomitant]
     Dosage: UNK
     Dates: start: 20120502

REACTIONS (4)
  - Gallbladder disorder [Unknown]
  - Anaemia [Unknown]
  - Transferrin saturation decreased [Unknown]
  - Drug ineffective [Not Recovered/Not Resolved]
